FAERS Safety Report 11960722 (Version 1)
Quarter: 2016Q1

REPORT INFORMATION
  Report Type: Report from Study
  Country: US (occurrence: US)
  Receive Date: 20160126
  Receipt Date: 20160126
  Transmission Date: 20160526
  Serious: No
  Sender: FDA-Public Use
  Company Number: US-ABBVIE-15K-163-1361334-00

PATIENT
  Age: 42 Year
  Sex: Female

DRUGS (1)
  1. HUMIRA [Suspect]
     Active Substance: ADALIMUMAB
     Indication: PRODUCT USED FOR UNKNOWN INDICATION
     Route: 058
     Dates: start: 20150116, end: 20150204

REACTIONS (4)
  - Adverse reaction [Unknown]
  - Abdominal pain [Unknown]
  - Back pain [Unknown]
  - Vomiting [Unknown]

NARRATIVE: CASE EVENT DATE: 201501
